FAERS Safety Report 8671987 (Version 2)
Quarter: 2013Q4

REPORT INFORMATION
  Report Type: Spontaneous
  Country: US (occurrence: US)
  Receive Date: 20120718
  Receipt Date: 20131101
  Transmission Date: 20140711
  Serious: No
  Sender: FDA-Public Use
  Company Number: US-009507513-1207USA002067

PATIENT
  Age: 39 Year
  Sex: Male

DRUGS (1)
  1. NASONEX [Suspect]
     Indication: HYPERSENSITIVITY
     Dosage: 2 DF, QD
     Route: 045
     Dates: start: 20120705

REACTIONS (3)
  - Headache [Unknown]
  - Pain [Unknown]
  - Nausea [Unknown]
